FAERS Safety Report 16757724 (Version 5)
Quarter: 2020Q4

REPORT INFORMATION
  Report Type: Report from Study
  Country: None (occurrence: CA)
  Receive Date: 20190830
  Receipt Date: 20201222
  Transmission Date: 20210113
  Serious: Yes (Other)
  Sender: FDA-Public Use
  Company Number: CA-ABBVIE-19K-028-2905974-00

PATIENT
  Sex: Female

DRUGS (3)
  1. HUMIRA [Suspect]
     Active Substance: ADALIMUMAB
     Route: 058
     Dates: start: 2020
  2. HUMIRA [Suspect]
     Active Substance: ADALIMUMAB
     Indication: CROHN^S DISEASE
     Route: 058
     Dates: start: 20180627, end: 2020
  3. HUMIRA [Suspect]
     Active Substance: ADALIMUMAB
     Route: 058
     Dates: start: 2020, end: 202009

REACTIONS (20)
  - Osteoarthritis [Recovered/Resolved]
  - Decreased appetite [Not Recovered/Not Resolved]
  - Food aversion [Recovered/Resolved]
  - Blister [Unknown]
  - Stomatitis [Unknown]
  - Fatigue [Not Recovered/Not Resolved]
  - Pruritus [Recovered/Resolved]
  - Arthralgia [Recovered/Resolved]
  - Skin laxity [Recovered/Resolved]
  - Skin discolouration [Not Recovered/Not Resolved]
  - Dry skin [Not Recovered/Not Resolved]
  - Food aversion [Recovered/Resolved]
  - Weight decreased [Not Recovered/Not Resolved]
  - Frequent bowel movements [Recovered/Resolved]
  - Constipation [Not Recovered/Not Resolved]
  - Pyoderma gangrenosum [Unknown]
  - Skin hypertrophy [Not Recovered/Not Resolved]
  - Rectal haemorrhage [Recovered/Resolved]
  - Acne [Recovered/Resolved]
  - Arthralgia [Not Recovered/Not Resolved]

NARRATIVE: CASE EVENT DATE: 2018
